FAERS Safety Report 8794443 (Version 1)
Quarter: 2012Q4

REPORT INFORMATION
  Report Type: 
  Country: JP (occurrence: JP)
  Receive Date: 20120917
  Receipt Date: 20120917
  Transmission Date: 20130627
  Serious: Yes (Other)
  Sender: FDA-Public Use
  Company Number: PHHY2012JP077917

PATIENT
  Age: 73 Year
  Sex: Male

DRUGS (2)
  1. ZOMETA [Suspect]
     Indication: METASTASES TO BONE
     Dosage: 4 mg, per administration
     Route: 041
     Dates: start: 20120830
  2. CALCIUM LACTATE [Concomitant]
     Dosage: 6 g, UNK
     Route: 048
     Dates: start: 20120830

REACTIONS (4)
  - General physical condition abnormal [Unknown]
  - Malnutrition [Unknown]
  - Hypocalcaemia [Recovered/Resolved]
  - Blood albumin decreased [Unknown]
